FAERS Safety Report 10174704 (Version 2)
Quarter: 2014Q2

REPORT INFORMATION
  Report Type: Spontaneous
  Country: US (occurrence: None)
  Receive Date: 20140416
  Receipt Date: 20140604
  Transmission Date: 20141212
  Serious: No
  Sender: FDA-Public Use
  Company Number: 163-POMAL-14014985

PATIENT
  Age: 83 Year
  Sex: Male

DRUGS (7)
  1. POMALYST (POMALIDOMIDE) (4 MILLIGRAM, CAPSULES) [Suspect]
     Indication: PLASMA CELL MYELOMA
     Route: 048
     Dates: start: 20130412
  2. DEXMETHASONE (DEXAMETHASONE) [Concomitant]
  3. NITROFURANTOIN MACROCRYSTAL (NITROFURANTOIN) [Concomitant]
  4. COUMADIN (WARFARIN SODIUM) [Concomitant]
  5. ACYCLOVIR (ACICLOVIR) (ACICLOVIR) [Concomitant]
  6. ATENOLOL [Concomitant]
  7. OXYCODONE [Concomitant]

REACTIONS (2)
  - Prostatitis [None]
  - Cystitis [None]
